FAERS Safety Report 15330984 (Version 1)
Quarter: 2018Q3

REPORT INFORMATION
  Report Type: Spontaneous
  Country: DE (occurrence: DE)
  Receive Date: 20180829
  Receipt Date: 20180829
  Transmission Date: 20181010
  Serious: Yes (Other)
  Sender: FDA-Public Use
  Company Number: DE-OTSUKA-2018_014271

PATIENT
  Age: 44 Year
  Sex: Male

DRUGS (3)
  1. ABILIFY MAINTENA [Suspect]
     Active Substance: ARIPIPRAZOLE
     Indication: SCHIZOPHRENIA
  2. ABILIFY MAINTENA [Suspect]
     Active Substance: ARIPIPRAZOLE
     Indication: SUBSTANCE-INDUCED PSYCHOTIC DISORDER
     Dosage: UNK (EVERY 4 WEEKS)
     Route: 065
     Dates: start: 20170124, end: 20180423
  3. ABILIFY [Suspect]
     Active Substance: ARIPIPRAZOLE
     Indication: PRODUCT USED FOR UNKNOWN INDICATION
     Dosage: 10 MG, UNK
     Route: 048
     Dates: start: 20160811

REACTIONS (7)
  - Supraventricular extrasystoles [Unknown]
  - Nocturia [Unknown]
  - Feeling abnormal [Recovered/Resolved]
  - Product use in unapproved indication [Unknown]
  - Ventricular extrasystoles [Unknown]
  - Electrocardiogram ST segment depression [Recovered/Resolved]
  - Sinus tachycardia [Unknown]

NARRATIVE: CASE EVENT DATE: 20170124
